FAERS Safety Report 5915945-0 (Version None)
Quarter: 2008Q4

REPORT INFORMATION
  Report Type: 
  Country: None (occurrence: None)
  Receive Date: 20081010
  Receipt Date: 20081006
  Transmission Date: 20090506
  Serious: Yes (Other)
  Sender: FDA-Public Use
  Company Number: US-GILEAD-2008-0018130

PATIENT
  Sex: Female
  Weight: 103.51 kg

DRUGS (8)
  1. LETAIRIS [Suspect]
     Indication: PULMONARY HYPERTENSION
     Route: 048
     Dates: start: 20080101
  2. NORVASC [Concomitant]
  3. LABETALOL HCL [Concomitant]
  4. PLAVIX [Concomitant]
  5. PREDNISONE TAB [Concomitant]
  6. ZANTAC [Concomitant]
  7. HYDROCHLOROTHIAZIDE [Concomitant]
  8. VITAMIN D [Concomitant]

REACTIONS (1)
  - PREGNANCY [None]
